FAERS Safety Report 18378146 (Version 1)
Quarter: 2020Q4

REPORT INFORMATION
  Report Type: Spontaneous
  Country: NP (occurrence: NP)
  Receive Date: 20201013
  Receipt Date: 20201013
  Transmission Date: 20210114
  Serious: Yes (Other)
  Sender: FDA-Public Use
  Company Number: NP-LUPIN PHARMACEUTICALS INC.-2020-03841

PATIENT
  Age: 10 Year
  Sex: Female

DRUGS (4)
  1. CEFIXIME. [Suspect]
     Active Substance: CEFIXIME
     Indication: PYREXIA
     Dosage: UNK
     Route: 065
  2. CEFIXIME. [Suspect]
     Active Substance: CEFIXIME
     Indication: COUGH
  3. PHENYTOIN SODIUM. [Suspect]
     Active Substance: PHENYTOIN SODIUM
     Indication: SEIZURE
     Dosage: 200 MILLIGRAM, QD AT NIGHT
     Route: 065
  4. CEFIXIME. [Suspect]
     Active Substance: CEFIXIME
     Indication: OROPHARYNGEAL PAIN

REACTIONS (1)
  - Stevens-Johnson syndrome [Recovering/Resolving]
